FAERS Safety Report 10027150 (Version 1)
Quarter: 2014Q1

REPORT INFORMATION
  Report Type: Spontaneous
  Country: US (occurrence: US)
  Receive Date: 20140321
  Receipt Date: 20140321
  Transmission Date: 20141002
  Serious: No
  Sender: FDA-Public Use
  Company Number: US-MYLANLABS-2013S1021317

PATIENT
  Sex: Female

DRUGS (1)
  1. ESTRADIOL TRANSDERMAL SYSTEM, USP [Suspect]
     Indication: MENOPAUSAL SYMPTOMS
     Dosage: QWEEK
     Route: 062
     Dates: start: 2011

REACTIONS (2)
  - Drug effect decreased [Not Recovered/Not Resolved]
  - Hot flush [Not Recovered/Not Resolved]
